FAERS Safety Report 9917667 (Version 3)
Quarter: 2014Q1

REPORT INFORMATION
  Report Type: Report from Study
  Country: US (occurrence: US)
  Receive Date: 20140221
  Receipt Date: 20140324
  Transmission Date: 20141002
  Serious: No
  Sender: FDA-Public Use
  Company Number: US-GILEAD-2014-0094763

PATIENT
  Age: 51 Year
  Sex: Male

DRUGS (3)
  1. SOFOSBUVIR [Suspect]
     Indication: CHRONIC HEPATITIS C
     Dosage: 400 MG, UNK
     Route: 065
     Dates: start: 20140126
  2. PEGINTERFERON [Suspect]
     Indication: CHRONIC HEPATITIS C
     Dosage: UNK
     Dates: start: 20140126
  3. RIBAVIRIN [Concomitant]

REACTIONS (8)
  - Dyskinesia [Unknown]
  - Dysgeusia [Unknown]
  - Dry mouth [Unknown]
  - Disturbance in attention [Unknown]
  - Red blood cell count decreased [Unknown]
  - Fatigue [Unknown]
  - Insomnia [Unknown]
  - Arthralgia [Unknown]
